FAERS Safety Report 24660208 (Version 1)
Quarter: 2024Q4

REPORT INFORMATION
  Report Type: Spontaneous
  Country: IN (occurrence: IN)
  Receive Date: 20241125
  Receipt Date: 20241125
  Transmission Date: 20250115
  Serious: Yes (Hospitalization, Congenital Anomaly, Other)
  Sender: CIPLA
  Company Number: IN-MLMSERVICE-20241104-PI247109-00037-1

PATIENT

DRUGS (2)
  1. DICLOFENAC [Suspect]
     Active Substance: DICLOFENAC
     Dosage: UNK
     Route: 064
  2. ACECLOFENAC [Suspect]
     Active Substance: ACECLOFENAC
     Dosage: UNK
     Route: 064

REACTIONS (2)
  - Cleft lip [Recovered/Resolved]
  - Foetal exposure during pregnancy [Unknown]
